FAERS Safety Report 9518997 (Version 3)
Quarter: 2013Q3

REPORT INFORMATION
  Report Type: Spontaneous
  Country: JP (occurrence: JP)
  Receive Date: 20130912
  Receipt Date: 20130920
  Transmission Date: 20140515
  Serious: Yes (Death, Life-Threatening)
  Sender: FDA-Public Use
  Company Number: JP-ROCHE-1266458

PATIENT
  Age: 57 Year
  Sex: Female

DRUGS (5)
  1. DENOSINE [Suspect]
     Indication: NEUTROPHIL COUNT DECREASED
     Route: 041
     Dates: start: 20130810, end: 20130812
  2. DENOSINE [Suspect]
     Indication: CYTOMEGALOVIRUS ENTEROCOLITIS
  3. CARBOPLATIN [Suspect]
     Indication: CERVIX CARCINOMA
     Dosage: 400 MG /DAY UNTIL 24/JUL/2013
     Route: 041
     Dates: start: 20130724, end: 20130724
  4. PACLITAXEL [Suspect]
     Indication: CERVIX CARCINOMA
     Dosage: 215 MG/DAY UNTIL 24/JUL/2013
     Route: 041
     Dates: start: 20130724, end: 20130724
  5. ELNEOPA [Concomitant]
     Route: 051
     Dates: start: 20130810, end: 20130830

REACTIONS (5)
  - Cervix carcinoma [Fatal]
  - Malignant ascites [Fatal]
  - Platelet count decreased [Recovering/Resolving]
  - White blood cell count decreased [Recovering/Resolving]
  - Pancytopenia [Recovered/Resolved]
